FAERS Safety Report 15917688 (Version 2)
Quarter: 2019Q1

REPORT INFORMATION
  Report Type: Report from Study
  Country: SD (occurrence: SD)
  Receive Date: 20190205
  Receipt Date: 20190215
  Transmission Date: 20190417
  Serious: Yes (Death, Hospitalization, Other)
  Sender: FDA-Public Use
  Company Number: SD-SA-2019SA026623

PATIENT
  Age: 63 Year
  Sex: Male

DRUGS (1)
  1. INSULIN GLARGINE [Suspect]
     Active Substance: INSULIN GLARGINE
     Indication: DIABETES MELLITUS
     Dosage: 35 IU, QD
     Route: 058

REACTIONS (8)
  - Myocardial infarction [Recovered/Resolved]
  - Infection [Fatal]
  - Cardiac disorder [Fatal]
  - Atrioventricular block [Recovered/Resolved]
  - Pyrexia [Unknown]
  - Sepsis [Fatal]
  - Myocardial ischaemia [Recovered/Resolved]
  - Bradycardia [Recovered/Resolved]

NARRATIVE: CASE EVENT DATE: 2015
